FAERS Safety Report 9491820 (Version 2)
Quarter: 2013Q3

REPORT INFORMATION
  Report Type: Not Available
  Country: US (occurrence: US)
  Receive Date: 20130919
  Receipt Date: 20130919
  Transmission Date: 20140515
  Serious: Yes (Other)
  Sender: FDA-Public Use
  Company Number: US-LUNDBECK-DKLU1083459

PATIENT
  Age: 5 Month
  Sex: Female
  Weight: 8.24 kg

DRUGS (14)
  1. SABRIL (FOR ORAL SOLUTION) [Suspect]
     Indication: CONVULSION
     Route: 048
     Dates: start: 20120512
  2. SABRIL (FOR ORAL SOLUTION) [Suspect]
     Indication: INFANTILE SPASMS
     Route: 048
  3. SABRIL (FOR ORAL SOLUTION) [Suspect]
     Indication: EPILEPSY
  4. TOPAMAX [Suspect]
     Indication: PRODUCT USED FOR UNKNOWN INDICATION
     Route: 048
  5. TOPAMAX [Suspect]
     Route: 048
  6. TOPAMAX [Suspect]
     Route: 048
  7. TOPAMAX [Suspect]
     Route: 048
     Dates: start: 20120711
  8. KLONOPIN [Concomitant]
     Indication: PRODUCT USED FOR UNKNOWN INDICATION
  9. KEPPRA [Concomitant]
     Indication: PRODUCT USED FOR UNKNOWN INDICATION
  10. PREDNISOLONE [Concomitant]
     Indication: PRODUCT USED FOR UNKNOWN INDICATION
     Route: 048
  11. SODIUM CITRATE-CITRIC ACID [Concomitant]
     Indication: PRODUCT USED FOR UNKNOWN INDICATION
     Route: 048
  12. RANITIDINE [Concomitant]
     Indication: PRODUCT USED FOR UNKNOWN INDICATION
     Route: 048
  13. ASPIRIN [Concomitant]
     Indication: PRODUCT USED FOR UNKNOWN INDICATION
     Route: 048
  14. TRI-VI-SOL [Concomitant]
     Indication: PRODUCT USED FOR UNKNOWN INDICATION
     Route: 048

REACTIONS (4)
  - Infantile spasms [Recovered/Resolved]
  - Drug ineffective [Unknown]
  - Weight increased [Recovering/Resolving]
  - Dyspnoea [Unknown]
